FAERS Safety Report 24097092 (Version 2)
Quarter: 2024Q3

REPORT INFORMATION
  Report Type: Report from Study
  Country: DE (occurrence: DE)
  Receive Date: 20240716
  Receipt Date: 20240812
  Transmission Date: 20241016
  Serious: Yes (Other)
  Sender: PFIZER
  Company Number: DE-STADA-01262652

PATIENT
  Age: 17 Year
  Sex: Male

DRUGS (2)
  1. CRIZOTINIB [Suspect]
     Active Substance: CRIZOTINIB
     Indication: Anaplastic large cell lymphoma T- and null-cell types
     Dosage: 330 MG/M2
     Route: 048
  2. VINBLASTINE [Suspect]
     Active Substance: VINBLASTINE
     Indication: Anaplastic large cell lymphoma T- and null-cell types
     Dosage: 6 MG/M2, WEEKLY (5 DOSES)

REACTIONS (1)
  - Neutropenia [Unknown]
